FAERS Safety Report 8809952 (Version 1)
Quarter: 2012Q4

REPORT INFORMATION
  Report Type: 
  Country: US (occurrence: US)
  Receive Date: 20120926
  Receipt Date: 20120926
  Transmission Date: 20130627
  Serious: Yes (Disabling)
  Sender: FDA-Public Use
  Company Number: US-009507513-1209USA009628

PATIENT

DRUGS (1)
  1. PRINIVIL [Suspect]
     Dosage: 5 mg, UNK
     Route: 048

REACTIONS (1)
  - Blood pressure abnormal [Unknown]
